FAERS Safety Report 7759473-9 (Version None)
Quarter: 2011Q3

REPORT INFORMATION
  Report Type: 
  Country: None (occurrence: None)
  Receive Date: 20110919
  Receipt Date: 20110919
  Transmission Date: 20111222
  Serious: Yes (Life-Threatening)
  Sender: FDA-Public Use
  Company Number: None

PATIENT
  Age: 54 Year
  Sex: Female
  Weight: 122.46 kg

DRUGS (1)
  1. METOPROLOL SUCCINATE [Suspect]
     Indication: CARDIAC DISORDER
     Dosage: 25 MG
     Dates: start: 20110716, end: 20110719

REACTIONS (6)
  - GAIT DISTURBANCE [None]
  - THINKING ABNORMAL [None]
  - INSOMNIA [None]
  - DYSSTASIA [None]
  - MALAISE [None]
  - NAUSEA [None]
